FAERS Safety Report 9097546 (Version 2)
Quarter: 2013Q1

REPORT INFORMATION
  Report Type: Spontaneous
  Country: FR (occurrence: FR)
  Receive Date: 20130212
  Receipt Date: 20130219
  Transmission Date: 20140127
  Serious: Yes (Hospitalization, Other)
  Sender: FDA-Public Use
  Company Number: FR-PFIZER INC-2013048181

PATIENT
  Sex: Female

DRUGS (5)
  1. LYRICA [Suspect]
     Indication: NEURALGIA
     Dosage: 200 MG, 2X/DAY
     Route: 048
     Dates: start: 2010, end: 20121126
  2. ACUPAN [Concomitant]
     Dosage: UNK
     Route: 051
     Dates: end: 20121126
  3. PARACETAMOL [Concomitant]
     Dosage: 1 G, AS NEEDED
     Route: 048
     Dates: start: 20121114
  4. KARDEGIC [Concomitant]
     Dosage: 75 MG, 1X/DAY
     Route: 048
  5. BACLOFEN [Concomitant]
     Indication: TRIGEMINAL NEURALGIA
     Dosage: 5 MG, 3X/DAY
     Route: 048
     Dates: start: 20121126, end: 20121127

REACTIONS (4)
  - Status epilepticus [Recovered/Resolved]
  - Trigeminal neuralgia [Recovered/Resolved]
  - Vomiting [Recovered/Resolved]
  - Drug withdrawal syndrome [Recovered/Resolved]
